FAERS Safety Report 9004685 (Version 1)
Quarter: 2013Q1

REPORT INFORMATION
  Report Type: Spontaneous
  Country: US (occurrence: None)
  Receive Date: 20130103
  Receipt Date: 20130103
  Transmission Date: 20140127
  Serious: Yes (Disabling)
  Sender: FDA-Public Use
  Company Number: None

PATIENT
  Sex: Female
  Weight: 56.7 kg

DRUGS (1)
  1. LEVAQUIN [Suspect]
     Indication: BRONCHITIS
     Dosage: 500MG TABLET ONCE PO
     Route: 048
     Dates: start: 20121001, end: 20121001

REACTIONS (9)
  - Pain in extremity [None]
  - Muscle strain [None]
  - Myalgia [None]
  - Impaired driving ability [None]
  - Gait disturbance [None]
  - Activities of daily living impaired [None]
  - Middle insomnia [None]
  - Quality of life decreased [None]
  - Fatigue [None]
